FAERS Safety Report 6481247-X (Version None)
Quarter: 2009Q4

REPORT INFORMATION
  Report Type: 
  Country: None (occurrence: None)
  Receive Date: 20091208
  Receipt Date: 20091201
  Transmission Date: 20100525
  Serious: Yes (Other)
  Sender: FDA-Public Use
  Company Number: A0808326A

PATIENT
  Age: 52 Year
  Sex: Male
  Weight: 83.6 kg

DRUGS (4)
  1. HYCAMTIN [Suspect]
     Indication: SMALL CELL LUNG CANCER STAGE UNSPECIFIED
     Dosage: 4MG PER DAY
     Route: 048
     Dates: start: 20090810, end: 20090905
  2. SYMBICORT [Concomitant]
  3. ALBUTEROL [Concomitant]
  4. VICODIN [Concomitant]

REACTIONS (7)
  - DRUG DISPENSING ERROR [None]
  - ERYTHEMA [None]
  - OEDEMA PERIPHERAL [None]
  - PALMAR-PLANTAR ERYTHRODYSAESTHESIA SYNDROME [None]
  - RASH [None]
  - SKIN EXFOLIATION [None]
  - SKIN WARM [None]
